FAERS Safety Report 4334208-0 (Version None)
Quarter: 2004Q2

REPORT INFORMATION
  Report Type: 
  Country: None (occurrence: None)
  Receive Date: 20040405
  Receipt Date: 20040322
  Transmission Date: 20050107
  Serious: Yes (Death)
  Sender: FDA-Public Use
  Company Number: US-JNJFOC-20040305937

PATIENT
  Age: 37 Year
  Sex: Male

DRUGS (2)
  1. ABCIXIMAB (ABCIXIMAB) INJECTION [Suspect]
     Indication: ISCHAEMIC STROKE
     Dosage: INTRAVENOUS
     Route: 042
  2. RETEPLASE (RETEPLASE) INJECTION [Suspect]
     Indication: ISCHAEMIC STROKE
     Dosage: INTRA-ARTERIAL
     Route: 013

REACTIONS (5)
  - BRAIN HERNIATION [None]
  - BRAIN OEDEMA [None]
  - CONDITION AGGRAVATED [None]
  - DRUG INTERACTION [None]
  - INTRACRANIAL PRESSURE INCREASED [None]
